FAERS Safety Report 8593100-6 (Version None)
Quarter: 2012Q3

REPORT INFORMATION
  Report Type: 
  Country: None (occurrence: None)
  Receive Date: 20120814
  Receipt Date: 20120806
  Transmission Date: 20120928
  Serious: Yes (Hospitalization)
  Sender: FDA-Public Use
  Company Number: US-JNJFOC-20120804384

PATIENT
  Sex: Male
  Weight: 50.8 kg

DRUGS (5)
  1. CALCIUM [Concomitant]
  2. REMICADE [Suspect]
     Indication: INFLAMMATORY BOWEL DISEASE
     Route: 042
     Dates: start: 20070804
  3. AZATHIOPRINE SODIUM [Concomitant]
  4. IRON [Concomitant]
  5. CYPROHEPTADINE HCL [Concomitant]

REACTIONS (1)
  - VOMITING [None]
